FAERS Safety Report 8463185-6 (Version None)
Quarter: 2012Q2

REPORT INFORMATION
  Report Type: 
  Country: None (occurrence: None)
  Receive Date: 20120323
  Receipt Date: 20111222
  Transmission Date: 20120825
  Serious: Yes (Disabling)
  Sender: FDA-Public Use
  Company Number: 163-21880-11111108

PATIENT
  Age: 88 Year
  Sex: Female

DRUGS (5)
  1. SPIRONOLACTONE [Concomitant]
  2. AMLODIPINE [Concomitant]
  3. CRESTOR [Concomitant]
  4. REVLIMID [Suspect]
     Indication: MULTIPLE MYELOMA
     Dosage: 10 MG M-W-F, PO
     Route: 048
     Dates: start: 20110824, end: 20111017
  5. ASPIRIN [Concomitant]

REACTIONS (3)
  - FULL BLOOD COUNT DECREASED [None]
  - PLATELET COUNT DECREASED [None]
  - NO THERAPEUTIC RESPONSE [None]
